FAERS Safety Report 5536042-2 (Version None)
Quarter: 2007Q4

REPORT INFORMATION
  Report Type: 
  Country: None (occurrence: None)
  Receive Date: 20071204
  Receipt Date: 20071126
  Transmission Date: 20080405
  Serious: Yes (Hospitalization)
  Sender: FDA-Public Use
  Company Number: 2007SP023811

PATIENT
  Age: 87 Year
  Sex: Female

DRUGS (1)
  1. NOXAFIL [Suspect]
     Indication: HISTOPLASMOSIS
     Dates: start: 20071101

REACTIONS (1)
  - BLOOD CALCIUM INCREASED [None]
